FAERS Safety Report 8557148-X (Version None)
Quarter: 2012Q3

REPORT INFORMATION
  Report Type: 
  Country: None (occurrence: None)
  Receive Date: 20120801
  Receipt Date: 20120726
  Transmission Date: 20120928
  Serious: Yes (Other)
  Sender: FDA-Public Use
  Company Number: US-PFIZER INC-2012181990

PATIENT
  Sex: Female
  Weight: 51.701 kg

DRUGS (18)
  1. NAPROXEN [Concomitant]
     Indication: PAIN
     Dosage: 500 MG, 1X/DAY
  2. MULTI-VITAMINS [Concomitant]
     Dosage: UNK, 1X/DAY
  3. SIMVASTATIN [Concomitant]
     Indication: BLOOD CHOLESTEROL ABNORMAL
     Dosage: UNK
  4. ZOFRAN [Concomitant]
     Indication: NAUSEA
     Dosage: 8 MG, UNK
  5. NITROGLYCERIN SUBLINGUAL [Concomitant]
     Indication: ANGINA PECTORIS
     Dosage: UNK, AS NEEDED
     Route: 060
  6. FENTANYL [Concomitant]
     Dosage: 12 UG, ONCE IN THREE DAYS
  7. CALCIUM CITRATE/VITAMIN D [Concomitant]
     Dosage: 630 MG/500 IU, UNK
  8. NITROGLYCERIN [Concomitant]
     Dosage: 0.4 MG, 1X/DAY
  9. DIOVAN HCT [Concomitant]
     Indication: LUNG DISORDER
     Dosage: UNK
  10. GABAPENTIN [Suspect]
     Indication: NEURALGIA
     Dosage: 200 MG, 3X/DAY
     Route: 048
     Dates: start: 20120406
  11. LEVOXYL [Concomitant]
     Indication: THYROID DISORDER
     Dosage: 88 UG, UNK
  12. CHONDROITIN/GLUCOSAMINE [Concomitant]
     Dosage: 1200/1500MG ,UNK
  13. LYRICA [Suspect]
     Indication: NEURALGIA
     Dosage: 75 MG, 2X/DAY
     Route: 048
     Dates: start: 20120725
  14. LIDODERM [Concomitant]
     Indication: PAIN
     Dosage: UNK
  15. ASPIRIN [Concomitant]
     Dosage: 81 MG, 1X/DAY
  16. LACTULOSE [Concomitant]
     Dosage: UNK
  17. VENTOLIN HFA [Concomitant]
     Indication: LUNG DISORDER
     Dosage: 90 MCG INHALER
  18. TORSEMIDE [Concomitant]
     Dosage: UNK

REACTIONS (10)
  - MENTAL IMPAIRMENT [None]
  - BALANCE DISORDER [None]
  - SPEECH DISORDER [None]
  - GAIT DISTURBANCE [None]
  - INSOMNIA [None]
  - FEELING ABNORMAL [None]
  - DEPRESSED MOOD [None]
  - SELF INJURIOUS BEHAVIOUR [None]
  - PAIN IN EXTREMITY [None]
  - PAIN [None]
